FAERS Safety Report 17853606 (Version 1)
Quarter: 2020Q2

REPORT INFORMATION
  Report Type: Spontaneous
  Country: US (occurrence: US)
  Receive Date: 20200603
  Receipt Date: 20200603
  Transmission Date: 20200714
  Serious: Yes (Other)
  Sender: FDA-Public Use
  Company Number: US-B.I. PHARMACEUTICALS,INC./RIDGEFIELD-2020-BI-026951

PATIENT
  Age: 12 Year
  Sex: Male
  Weight: 32 kg

DRUGS (3)
  1. CATAPRES [Suspect]
     Active Substance: CLONIDINE HYDROCHLORIDE
     Indication: AUTISM SPECTRUM DISORDER
     Dosage: STRENGTH: 0.09MG/ML
     Route: 065
  2. CATAPRES [Suspect]
     Active Substance: CLONIDINE HYDROCHLORIDE
     Dosage: STRENGTH: 0.72 MG/ML PATIENT RECEIVED 1.58 MG
     Route: 065
  3. BUSPIRONE [Concomitant]
     Active Substance: BUSPIRONE HYDROCHLORIDE
     Indication: AUTISM SPECTRUM DISORDER
     Dosage: 5 MG/ML
     Route: 065

REACTIONS (3)
  - Toxicity to various agents [Recovered/Resolved]
  - Medication error [Unknown]
  - Overdose [Unknown]
